FAERS Safety Report 5456038-9 (Version None)
Quarter: 2007Q3

REPORT INFORMATION
  Report Type: 
  Country: None (occurrence: None)
  Receive Date: 20070918
  Receipt Date: 20070330
  Transmission Date: 20080115
  Serious: Yes (Other)
  Sender: FDA-Public Use
  Company Number: US-ASTRAZENECA-2006UW23978

PATIENT
  Sex: Female
  Weight: 60.5 kg

DRUGS (4)
  1. SEROQUEL [Suspect]
     Indication: BIPOLAR DISORDER
     Dosage: 25 - 600 MG
     Route: 048
     Dates: start: 20030101
  2. ZYPREXA [Suspect]
  3. ABILIFY [Concomitant]
  4. RISPERDAL [Concomitant]

REACTIONS (1)
  - TARDIVE DYSKINESIA [None]
